FAERS Safety Report 19982977 (Version 1)
Quarter: 2021Q4

REPORT INFORMATION
  Report Type: Spontaneous
  Country: IT (occurrence: IT)
  Receive Date: 20211022
  Receipt Date: 20211022
  Transmission Date: 20220303
  Serious: Yes (Death, Other)
  Sender: FDA-Public Use
  Company Number: IT-BIOVITRUM-2021IT9367

PATIENT
  Age: 17 Year
  Sex: Male

DRUGS (2)
  1. ANAKINRA [Suspect]
     Active Substance: ANAKINRA
     Indication: Acute lymphocytic leukaemia
     Route: 058
  2. ANAKINRA [Suspect]
     Active Substance: ANAKINRA
     Indication: Inflammation
     Route: 058

REACTIONS (8)
  - Renal failure [Fatal]
  - Cardiac failure [Fatal]
  - Cytopenia [Unknown]
  - Venoocclusive liver disease [Unknown]
  - Cystitis haemorrhagic [Unknown]
  - Sepsis [Unknown]
  - Cytomegalovirus hepatitis [Unknown]
  - Off label use [Unknown]
